FAERS Safety Report 11594749 (Version 1)
Quarter: 2015Q4

REPORT INFORMATION
  Report Type: Report from Study
  Country: US (occurrence: US)
  Receive Date: 20151005
  Receipt Date: 20151005
  Transmission Date: 20160304
  Serious: Yes (Hospitalization)
  Sender: FDA-Public Use
  Company Number: US-NPS_PHARMACEUTICALS-001899

PATIENT
  Age: 64 Year
  Sex: Female

DRUGS (4)
  1. IV ANTIBIOTICS [Concomitant]
     Active Substance: UNSPECIFIED INGREDIENT
     Indication: SEPSIS
     Dosage: DF
     Route: 042
  2. IV ANTIBIOTICS [Concomitant]
     Active Substance: UNSPECIFIED INGREDIENT
     Indication: DEVICE RELATED INFECTION
     Dosage: DF
     Route: 042
  3. TPN [Concomitant]
     Active Substance: AMINO ACIDS\DEXTROSE\ELECTROLYTES NOS\SOYBEAN OIL
     Indication: MEDICAL DIET
     Dosage: DF
  4. GATTEX [Suspect]
     Active Substance: TEDUGLUTIDE\WATER
     Indication: SHORT-BOWEL SYNDROME
     Dosage: DF
     Route: 058
     Dates: end: 201509

REACTIONS (4)
  - Intestinal obstruction [Unknown]
  - Sepsis [Unknown]
  - Device related infection [Unknown]
  - Malaise [Unknown]

NARRATIVE: CASE EVENT DATE: 201504
